FAERS Safety Report 10035683 (Version 1)
Quarter: 2014Q1

REPORT INFORMATION
  Report Type: Spontaneous
  Country: US (occurrence: None)
  Receive Date: 20140306
  Receipt Date: 20140306
  Transmission Date: 20141002
  Serious: Yes (Hospitalization)
  Sender: FDA-Public Use
  Company Number: 163-21880-13034021

PATIENT
  Age: 82 Year
  Sex: Male
  Weight: 65.77 kg

DRUGS (10)
  1. REVLIMID [Suspect]
     Indication: PLASMA CELL MYELOMA
     Dosage: 1 IN 2 D
     Route: 048
     Dates: start: 20121101
  2. AGGRENOX (ASASANTIN) [Concomitant]
  3. CELEXA (CITALOPRAM HYDROBROMIDE) (20 MILLIGRAM, TABLETS) [Concomitant]
  4. FOLIC ACID (FOLIC ACID) (20 MILLIGRAM, CAPSULES) [Concomitant]
  5. IRON (IRON) (TABLETS) [Concomitant]
  6. LASIX (FUROSEMIDE) (20 MILLIGRAM, TABLETS) [Concomitant]
  7. LIPITOR (ATORVASTATIN) (40 MILLIGRAM, TABLETS) [Concomitant]
  8. METOPROLOL TARTRATE (METOPROLOL TARTRATE) [Concomitant]
  9. NEURONTIN (GABAPENTIN) (600 MILLIGRAM, TABLETS) [Concomitant]
  10. NEXIUM (ESOMEPRAZOLE) (20 MILLIGRAM, CAPSULES) [Concomitant]

REACTIONS (3)
  - Influenza [None]
  - Pneumonia [None]
  - Platelet count decreased [None]
